FAERS Safety Report 11781397 (Version 1)
Quarter: 2015Q4

REPORT INFORMATION
  Report Type: Spontaneous
  Country: US (occurrence: US)
  Receive Date: 20151126
  Receipt Date: 20151126
  Transmission Date: 20160305
  Serious: No
  Sender: FDA-Public Use
  Company Number: US-JNJFOC-20151105379

PATIENT
  Sex: Female
  Weight: 46.72 kg

DRUGS (2)
  1. MENS ROGAINE EXTRA STRENGTH [Suspect]
     Active Substance: MINOXIDIL
     Route: 061
  2. MENS ROGAINE EXTRA STRENGTH [Suspect]
     Active Substance: MINOXIDIL
     Indication: ALOPECIA
     Dosage: ONE DROP, ONCE A DAY-3X A WEEK
     Route: 061

REACTIONS (5)
  - Pruritus [Recovered/Resolved]
  - Drug administered at inappropriate site [Recovered/Resolved]
  - Pain of skin [Recovered/Resolved]
  - Hyperaesthesia [Recovered/Resolved]
  - Wrong patient received medication [Recovered/Resolved]
